FAERS Safety Report 8122667-7 (Version None)
Quarter: 2012Q1

REPORT INFORMATION
  Report Type: 
  Country: None (occurrence: None)
  Receive Date: 20120208
  Receipt Date: 20120131
  Transmission Date: 20120608
  Serious: Yes (Hospitalization)
  Sender: FDA-Public Use
  Company Number: US-BIOGENIDEC-2012BI003936

PATIENT
  Age: 45 Year
  Sex: Female

DRUGS (1)
  1. TYSABRI [Suspect]
     Indication: MULTIPLE SCLEROSIS
     Route: 042
     Dates: start: 20100901, end: 20110527

REACTIONS (4)
  - LOWER LIMB FRACTURE [None]
  - ANAESTHETIC COMPLICATION PULMONARY [None]
  - HERPES ZOSTER [None]
  - ARTHRALGIA [None]
